FAERS Safety Report 11198903 (Version 1)
Quarter: 2015Q2

REPORT INFORMATION
  Report Type: Spontaneous
  Country: CH (occurrence: None)
  Receive Date: 20150616
  Receipt Date: 20150616
  Transmission Date: 20150821
  Serious: Yes (Other)
  Sender: FDA-Public Use
  Company Number: CH2015080677

PATIENT
  Age: 48 Year
  Sex: Female

DRUGS (1)
  1. TIVICAY [Suspect]
     Active Substance: DOLUTEGRAVIR SODIUM
     Dates: start: 20150210, end: 20150424

REACTIONS (7)
  - Amnesia [None]
  - Dizziness [None]
  - Abnormal dreams [None]
  - Paraesthesia [None]
  - Disturbance in attention [None]
  - Insomnia [None]
  - Scintillating scotoma [None]

NARRATIVE: CASE EVENT DATE: 20150303
